FAERS Safety Report 20497091 (Version 3)
Quarter: 2022Q2

REPORT INFORMATION
  Report Type: Report from Study
  Country: US (occurrence: US)
  Receive Date: 20220221
  Receipt Date: 20220518
  Transmission Date: 20220721
  Serious: Yes (Hospitalization)
  Sender: FDA-Public Use
  Company Number: US-PFIZER INC-202200274177

PATIENT
  Age: 5 Year
  Sex: Male
  Weight: 26.5 kg

DRUGS (6)
  1. VINCRISTINE SULFATE [Suspect]
     Active Substance: VINCRISTINE SULFATE
     Indication: Acute lymphocytic leukaemia
     Dosage: 1.4 MG, ONCE
     Route: 042
     Dates: start: 20190606
  2. METHOTREXATE SODIUM [Suspect]
     Active Substance: METHOTREXATE SODIUM
     Indication: Acute lymphocytic leukaemia
     Dosage: 12 MG, ONCE
     Route: 037
     Dates: start: 20190523
  3. RUXOLITINIB [Suspect]
     Active Substance: RUXOLITINIB
     Indication: Acute lymphocytic leukaemia
     Dosage: 45 MG, 2X/DAY, D1-14, 29-42, 57-70, TABLET
     Route: 048
     Dates: start: 20200313
  4. PREDNISONE [Suspect]
     Active Substance: PREDNISONE
     Indication: Acute lymphocytic leukaemia
     Dosage: 20 MG/M2, 2X/DAY, TABLET
     Route: 048
     Dates: start: 20200313
  5. METHOTREXATE [Suspect]
     Active Substance: METHOTREXATE
     Indication: Acute lymphocytic leukaemia
     Dosage: 20 MG/M2, WEEKLY, TABLET
     Route: 048
     Dates: start: 20200320
  6. MERCAPTOPURINE [Suspect]
     Active Substance: MERCAPTOPURINE
     Indication: Acute lymphocytic leukaemia
     Dosage: 25 MG, 1X/DAY, TABLET
     Route: 048
     Dates: start: 20200313

REACTIONS (1)
  - Streptococcal bacteraemia [Recovered/Resolved]

NARRATIVE: CASE EVENT DATE: 20220201
